FAERS Safety Report 8171046-5 (Version None)
Quarter: 2012Q1

REPORT INFORMATION
  Report Type: 
  Country: None (occurrence: None)
  Receive Date: 20120228
  Receipt Date: 20120220
  Transmission Date: 20120608
  Serious: Yes (Hospitalization, Other)
  Sender: FDA-Public Use
  Company Number: PHHY2011FR105630

PATIENT
  Sex: Female
  Weight: 60 kg

DRUGS (8)
  1. ZOLEDRONOC ACID [Suspect]
     Indication: OSTEOPOROSIS
     Dosage: UNK UKN, UNK
     Route: 042
     Dates: start: 20111128
  2. EZETIMIBE [Concomitant]
     Dosage: ONCE A DAY
  3. ADANCOR [Concomitant]
     Dosage: 20 MG, BID
  4. CORVASAL [Concomitant]
     Dosage: 2 MG, TID
  5. LEVOTHYROXINE SODIUM [Concomitant]
     Dosage: 125 MG, QD
  6. ASPIRIN [Concomitant]
     Dosage: 75 MG, QD
  7. PLAQUENIL [Concomitant]
     Dosage: 200 MG, BID
  8. VERAPAMIL [Concomitant]
     Dosage: 240 MG, BID

REACTIONS (13)
  - ASTHENIA [None]
  - INGUINAL HERNIA [None]
  - PELVIC FLUID COLLECTION [None]
  - PYREXIA [None]
  - SKIN PLAQUE [None]
  - ABDOMINAL PAIN LOWER [None]
  - INFLUENZA LIKE ILLNESS [None]
  - ILEITIS [None]
  - ABDOMINAL PAIN [None]
  - PAIN IN EXTREMITY [None]
  - PAIN [None]
  - RASH ERYTHEMATOUS [None]
  - VOMITING [None]
